APPROVED DRUG PRODUCT: SODIUM PERTECHNETATE TC 99M
Active Ingredient: TECHNETIUM TC-99M SODIUM PERTECHNETATE
Strength: 10-60mCi/ML **Federal Register determination that product was not discontinued or withdrawn for safety or effectiveness reasons**
Dosage Form/Route: SOLUTION;INJECTION, ORAL
Application: N017725 | Product #001
Applicant: MALLINCKRODT MEDICAL INC
Approved: Approved Prior to Jan 1, 1982 | RLD: Yes | RS: No | Type: DISCN